FAERS Safety Report 20837898 (Version 1)
Quarter: 2022Q2

REPORT INFORMATION
  Report Type: Spontaneous
  Country: AU (occurrence: AU)
  Receive Date: 20220517
  Receipt Date: 20220517
  Transmission Date: 20220721
  Serious: Yes (Other)
  Sender: FDA-Public Use
  Company Number: AU-SA-SAC20220517000120

PATIENT
  Age: 25 Year
  Sex: Female

DRUGS (1)
  1. DUPILUMAB [Suspect]
     Active Substance: DUPILUMAB
     Dosage: UNK

REACTIONS (8)
  - Cataract [Not Recovered/Not Resolved]
  - Dry eye [Unknown]
  - Eczema [Unknown]
  - Visual impairment [Not Recovered/Not Resolved]
  - Feeling of despair [Not Recovered/Not Resolved]
  - Impaired quality of life [Not Recovered/Not Resolved]
  - Seasonal allergy [Unknown]
  - Adverse drug reaction [Not Recovered/Not Resolved]

NARRATIVE: CASE EVENT DATE: 20220118
